FAERS Safety Report 22787059 (Version 3)
Quarter: 2024Q1

REPORT INFORMATION
  Report Type: Spontaneous
  Country: US (occurrence: US)
  Receive Date: 20230804
  Receipt Date: 20240106
  Transmission Date: 20240410
  Serious: Yes (Hospitalization)
  Sender: FDA-Public Use
  Company Number: US-JNJFOC-20230750095

PATIENT
  Age: 50 Year
  Sex: Male

DRUGS (2)
  1. TREMFYA [Suspect]
     Active Substance: GUSELKUMAB
     Indication: Product used for unknown indication
     Route: 065
     Dates: start: 20230516
  2. TREMFYA [Suspect]
     Active Substance: GUSELKUMAB
     Route: 065
     Dates: start: 20230516

REACTIONS (8)
  - Transient ischaemic attack [Not Recovered/Not Resolved]
  - Headache [Not Recovered/Not Resolved]
  - Hypersensitivity [Unknown]
  - Dry skin [Unknown]
  - Fatigue [Unknown]
  - Dry mouth [Not Recovered/Not Resolved]
  - Musculoskeletal pain [Unknown]
  - Inflammation [Unknown]

NARRATIVE: CASE EVENT DATE: 20230101
